FAERS Safety Report 15667976 (Version 3)
Quarter: 2018Q4

REPORT INFORMATION
  Report Type: Spontaneous
  Country: IL (occurrence: IL)
  Receive Date: 20181128
  Receipt Date: 20181206
  Transmission Date: 20190205
  Serious: Yes (Other)
  Sender: FDA-Public Use
  Company Number: IL-ALLERGAN-1855137US

PATIENT
  Age: 60 Year
  Sex: Male

DRUGS (1)
  1. OZURDEX [Suspect]
     Active Substance: DEXAMETHASONE
     Indication: UVEITIS
     Dosage: 0.7 MG, SINGLE
     Route: 031
     Dates: start: 20180521, end: 20180521

REACTIONS (3)
  - Device dislocation [Not Recovered/Not Resolved]
  - Injury corneal [Not Recovered/Not Resolved]
  - Visual acuity reduced [Not Recovered/Not Resolved]
